FAERS Safety Report 6523834-6 (Version None)
Quarter: 2009Q4

REPORT INFORMATION
  Report Type: 
  Country: None (occurrence: None)
  Receive Date: 20091230
  Receipt Date: 20091230
  Transmission Date: 20100525
  Serious: Yes (Hospitalization)
  Sender: FDA-Public Use
  Company Number: None

PATIENT
  Age: 83 Year
  Sex: Male
  Weight: 79.3 kg

DRUGS (1)
  1. AZATHIOPRINE [Suspect]
     Indication: COLITIS
     Dosage: 50 MG TID PO
     Route: 048
     Dates: start: 20071207, end: 20080206

REACTIONS (1)
  - PANCREATITIS [None]
